FAERS Safety Report 23657595 (Version 1)
Quarter: 2024Q1

REPORT INFORMATION
  Report Type: Spontaneous
  Country: US (occurrence: US)
  Receive Date: 20240321
  Receipt Date: 20240321
  Transmission Date: 20240409
  Serious: No
  Sender: FDA-Public Use
  Company Number: US-B.Braun Medical Inc.-2154574

PATIENT

DRUGS (2)
  1. SODIUM CHLORIDE [Suspect]
     Active Substance: SODIUM CHLORIDE
  2. STERILE WATER FOR IRRIGATION [Concomitant]
     Active Substance: WATER

REACTIONS (2)
  - Blood sodium increased [Unknown]
  - Medication error [Unknown]
